FAERS Safety Report 14995404 (Version 1)
Quarter: 2018Q2

REPORT INFORMATION
  Report Type: Spontaneous
  Country: US (occurrence: US)
  Receive Date: 20180611
  Receipt Date: 20180611
  Transmission Date: 20180711
  Serious: No
  Sender: FDA-Public Use
  Company Number: US-SA-2018SA137152

PATIENT
  Age: 57 Year
  Sex: Female

DRUGS (1)
  1. XYZAL ALLERGY 24HR [Suspect]
     Active Substance: LEVOCETIRIZINE DIHYDROCHLORIDE
     Dosage: 5 MG,QD
     Route: 048
     Dates: start: 20180507, end: 20180507

REACTIONS (5)
  - Dehydration [Recovering/Resolving]
  - Somnolence [Recovering/Resolving]
  - Drug intolerance [Unknown]
  - Sleep disorder [Recovering/Resolving]
  - Fatigue [Recovering/Resolving]

NARRATIVE: CASE EVENT DATE: 20180508
